FAERS Safety Report 22941071 (Version 3)
Quarter: 2023Q4

REPORT INFORMATION
  Report Type: Spontaneous
  Country: US (occurrence: US)
  Receive Date: 20230913
  Receipt Date: 20231030
  Transmission Date: 20240110
  Serious: Yes (Death, Other)
  Sender: FDA-Public Use
  Company Number: US-GILEAD-2023-0643624

PATIENT
  Age: 31 Year
  Sex: Male

DRUGS (2)
  1. YESCARTA [Suspect]
     Active Substance: AXICABTAGENE CILOLEUCEL
     Indication: Diffuse large B-cell lymphoma
     Dosage: UNK
     Route: 065
     Dates: start: 20230816, end: 20230816
  2. SEROTONIN [Concomitant]
     Active Substance: SEROTONIN

REACTIONS (10)
  - Diffuse large B-cell lymphoma [Fatal]
  - Neurotoxicity [Recovering/Resolving]
  - Delirium [Recovering/Resolving]
  - Gastrointestinal infection [Recovering/Resolving]
  - Hypophagia [Recovering/Resolving]
  - Dehydration [Recovering/Resolving]
  - Asthenia [Recovering/Resolving]
  - Tremor [Recovering/Resolving]
  - Fall [Recovering/Resolving]
  - Drug ineffective [Unknown]

NARRATIVE: CASE EVENT DATE: 20230925
